FAERS Safety Report 10052390 (Version 1)
Quarter: 2014Q2

REPORT INFORMATION
  Report Type: Spontaneous
  Country: US (occurrence: None)
  Receive Date: 20140401
  Receipt Date: 20140401
  Transmission Date: 20141212
  Serious: Yes (Other)
  Sender: FDA-Public Use
  Company Number: None

PATIENT
  Age: 40 Year
  Sex: Female
  Weight: 90.72 kg

DRUGS (1)
  1. IBUPROFEN TABLETS [Suspect]
     Indication: HEADACHE
     Dates: start: 20140330, end: 20140330

REACTIONS (5)
  - Swelling face [None]
  - Eye swelling [None]
  - Fatigue [None]
  - Chills [None]
  - Depression [None]
